FAERS Safety Report 9053606 (Version 1)
Quarter: 2013Q1

REPORT INFORMATION
  Report Type: Spontaneous
  Country: US (occurrence: None)
  Receive Date: 20130201
  Receipt Date: 20130201
  Transmission Date: 20140127
  Serious: No
  Sender: FDA-Public Use
  Company Number: None

PATIENT
  Age: 17 Year
  Sex: Female

DRUGS (1)
  1. HALOPERIDOL [Suspect]
     Route: 048

REACTIONS (3)
  - Extrapyramidal disorder [None]
  - Tremor [None]
  - Bradykinesia [None]
